FAERS Safety Report 21394304 (Version 1)
Quarter: 2022Q3

REPORT INFORMATION
  Report Type: Spontaneous
  Country: DE (occurrence: DE)
  Receive Date: 20220930
  Receipt Date: 20220930
  Transmission Date: 20221027
  Serious: Yes (Hospitalization)
  Sender: FDA-Public Use
  Company Number: DE-ADRED-07179-03

PATIENT
  Age: 78 Year
  Sex: Male

DRUGS (8)
  1. PREDNISOLONE [Suspect]
     Active Substance: PREDNISOLONE
     Indication: Product used for unknown indication
     Dosage: 1 DOSAGE FORMS DAILY; 80 MG, 1-0-0-0, UNIT DOSE : 1 DF , FREQUENCY : OD, MEDICATION ERRORS
  2. MIRTAZAPINE [Concomitant]
     Active Substance: MIRTAZAPINE
     Indication: Product used for unknown indication
     Dosage: 2 DOSAGE FORMS DAILY; 15 MG, 1-0-0-1, UNIT DOSE : 1 DF , FREQUENCY : BD
  3. PANTOPRAZOLE [Concomitant]
     Active Substance: PANTOPRAZOLE
     Indication: Product used for unknown indication
     Dosage: 2 DOSAGE FORMS DAILY; 40 MG, 1-0-1-0, UNIT DOSE : 1 DF , FREQUENCY : BD
  4. CARVEDILOL [Concomitant]
     Active Substance: CARVEDILOL
     Indication: Product used for unknown indication
     Dosage: 1 DOSAGE FORMS DAILY; 12.5 MG, 0.5-0-0-0.5, UNIT DOSE : 0.5 DF , FREQUENCY : BD
  5. LERCANIDIPINE [Concomitant]
     Active Substance: LERCANIDIPINE
     Indication: Product used for unknown indication
  6. TAMSULOSIN [Concomitant]
     Active Substance: TAMSULOSIN
     Indication: Product used for unknown indication
     Dosage: 1 DOSAGE FORMS DAILY; 0.4 MG, 1-0-0-0, UNIT DOSE : 1 DF , FREQUENCY : OD
  7. APIXABAN [Concomitant]
     Active Substance: APIXABAN
     Indication: Product used for unknown indication
     Dosage: 2 DOSAGE FORMS DAILY; 5 MG, 1-0-1-0, UNIT DOSE : 1 DF , FREQUENCY : BD
  8. TORSEMIDE [Concomitant]
     Active Substance: TORSEMIDE
     Indication: Product used for unknown indication
     Dosage: 1 DOSAGE FORMS DAILY; 10 MG, 1-0-0-0

REACTIONS (6)
  - Medication error [Unknown]
  - General physical health deterioration [Unknown]
  - Dehydration [Unknown]
  - Hyperglycaemia [Unknown]
  - Steroid diabetes [Unknown]
  - Product prescribing error [Unknown]
